FAERS Safety Report 14342655 (Version 1)
Quarter: 2017Q4

REPORT INFORMATION
  Report Type: Spontaneous
  Country: US (occurrence: US)
  Receive Date: 20171229
  Receipt Date: 20171229
  Transmission Date: 20180321
  Serious: No
  Sender: FDA-Public Use
  Company Number: None

PATIENT
  Age: 50 Year
  Sex: Female

DRUGS (1)
  1. HARVONI [Suspect]
     Active Substance: LEDIPASVIR\SOFOSBUVIR
     Indication: ACUTE HEPATITIS C
     Dosage: 90-400MG ONCE DAILY BY MOUTH
     Route: 048
     Dates: start: 20170929

REACTIONS (8)
  - Pruritus [None]
  - Lip swelling [None]
  - Chapped lips [None]
  - Eating disorder [None]
  - Rash pruritic [None]
  - Rash [None]
  - Lip blister [None]
  - Lip exfoliation [None]

NARRATIVE: CASE EVENT DATE: 20171129
